FAERS Safety Report 8961572 (Version 2)
Quarter: 2012Q4

REPORT INFORMATION
  Report Type: 
  Country: GA (occurrence: GA)
  Receive Date: 20121213
  Receipt Date: 20121214
  Transmission Date: 20130627
  Serious: Yes (Death, Other)
  Sender: FDA-Public Use
  Company Number: PHHY2012GA114050

PATIENT
  Sex: Female

DRUGS (1)
  1. GLIVEC [Suspect]
     Indication: CHRONIC MYELOID LEUKAEMIA
     Dosage: 400 mg
     Dates: start: 20120803

REACTIONS (2)
  - Death [Fatal]
  - Blindness [Unknown]
